FAERS Safety Report 10082679 (Version 1)
Quarter: 2014Q2

REPORT INFORMATION
  Report Type: Spontaneous
  Country: DE (occurrence: DE)
  Receive Date: 20140416
  Receipt Date: 20140416
  Transmission Date: 20141212
  Serious: Yes (Other)
  Sender: FDA-Public Use
  Company Number: GXKR2014DE001604

PATIENT
  Age: 17 Year
  Sex: Male
  Weight: 51 kg

DRUGS (3)
  1. LORATADIN [Suspect]
     Indication: RHINITIS ALLERGIC
     Route: 048
     Dates: start: 20140401, end: 20140402
  2. KEPPRA [Concomitant]
     Indication: EPILEPSY
     Dosage: 3000 MG, UNK
     Route: 048
  3. LAMOTRIGIN [Concomitant]
     Indication: EPILEPSY
     Dosage: 600 MG, UNK
     Route: 048

REACTIONS (1)
  - Convulsion [Recovering/Resolving]
